FAERS Safety Report 15431825 (Version 2)
Quarter: 2018Q4

REPORT INFORMATION
  Report Type: Spontaneous
  Country: US (occurrence: US)
  Receive Date: 20180926
  Receipt Date: 20181008
  Transmission Date: 20190204
  Serious: Yes (Hospitalization)
  Sender: FDA-Public Use
  Company Number: US-ALLERGAN-1846058US

PATIENT
  Sex: Male

DRUGS (1)
  1. LINZESS [Suspect]
     Active Substance: LINACLOTIDE
     Indication: CONSTIPATION
     Dosage: 145 ?G, QD
     Route: 065

REACTIONS (5)
  - Musculoskeletal disorder [Unknown]
  - Off label use [Unknown]
  - Wrong technique in product usage process [Unknown]
  - Faecaloma [Unknown]
  - Drug ineffective for unapproved indication [Unknown]
